FAERS Safety Report 9541968 (Version 3)
Quarter: 2013Q4

REPORT INFORMATION
  Report Type: Spontaneous
  Country: US (occurrence: US)
  Receive Date: 20130923
  Receipt Date: 20131028
  Transmission Date: 20140711
  Serious: Yes (Other)
  Sender: FDA-Public Use
  Company Number: US-SANOFI-AVENTIS-2013SA092150

PATIENT
  Age: 71 Year
  Sex: Male
  Weight: 102 kg

DRUGS (10)
  1. LANTUS [Suspect]
     Indication: DIABETES MELLITUS
     Dosage: DOSE:50 UNIT(S)
     Route: 065
     Dates: start: 2009
  2. GLIPIZIDE [Concomitant]
     Indication: DIABETES MELLITUS
     Route: 065
     Dates: start: 1986
  3. CARVEDILOL [Concomitant]
     Indication: CARDIAC DISORDER
     Route: 065
     Dates: start: 1997
  4. POTASSIUM [Concomitant]
  5. SPIRONOLACTONE [Concomitant]
     Route: 065
  6. FUROSEMIDE [Concomitant]
  7. DIETHYLSTILBESTROL [Concomitant]
     Indication: NEOPLASM MALIGNANT
     Route: 065
     Dates: start: 201310
  8. TAMSULOSIN [Concomitant]
     Indication: PROSTATE CANCER
     Route: 065
     Dates: start: 201306
  9. LEUPROLIDE [Concomitant]
     Indication: PROSTATE CANCER
  10. ZOLEDRONIC ACID [Concomitant]
     Indication: BONE DISORDER

REACTIONS (5)
  - Prostate cancer [Not Recovered/Not Resolved]
  - Cardiac failure [Not Recovered/Not Resolved]
  - Cardiomegaly [Not Recovered/Not Resolved]
  - Hypoacusis [Unknown]
  - Malaise [Unknown]
